FAERS Safety Report 11556466 (Version 3)
Quarter: 2015Q4

REPORT INFORMATION
  Report Type: Spontaneous
  Country: FR (occurrence: FR)
  Receive Date: 20150925
  Receipt Date: 20151030
  Transmission Date: 20160304
  Serious: Yes (Other)
  Sender: FDA-Public Use
  Company Number: FR-GLAXOSMITHKLINE-FR2015GSK136603

PATIENT
  Sex: Female
  Weight: 48 kg

DRUGS (4)
  1. IMIJECT [Suspect]
     Active Substance: SUMATRIPTAN SUCCINATE
     Indication: CLUSTER HEADACHE
     Dosage: 6 MG, UNK
  2. EPITOMAX [Concomitant]
     Active Substance: TOPIRAMATE
     Dosage: 100 MG, UNK
     Route: 048
     Dates: start: 2010
  3. PROZAC [Concomitant]
     Active Substance: FLUOXETINE HYDROCHLORIDE
     Dosage: 50 MG, UNK
     Route: 048
     Dates: start: 2000
  4. IMIJECT [Suspect]
     Active Substance: SUMATRIPTAN SUCCINATE
     Indication: CLUSTER HEADACHE
     Dosage: 6 MG, UNK
     Dates: start: 2010

REACTIONS (7)
  - Drug ineffective [Recovered/Resolved]
  - Product quality issue [Unknown]
  - Injection site pain [Recovering/Resolving]
  - Erythema [Unknown]
  - Mastitis [Not Recovered/Not Resolved]
  - Breast pain [Unknown]
  - Chest pain [Not Recovered/Not Resolved]

NARRATIVE: CASE EVENT DATE: 2013
